FAERS Safety Report 16699773 (Version 3)
Quarter: 2019Q3

REPORT INFORMATION
  Report Type: Spontaneous
  Country: US (occurrence: US)
  Receive Date: 20190813
  Receipt Date: 20190828
  Transmission Date: 20191004
  Serious: Yes (Hospitalization)
  Sender: FDA-Public Use
  Company Number: US-TEVA-2019-US-1090541

PATIENT
  Age: 16 Year
  Sex: Female

DRUGS (2)
  1. COTRIMOXAZOLE [Suspect]
     Active Substance: SULFAMETHOXAZOLE\TRIMETHOPRIM
     Indication: ACNE
     Route: 065
  2. MICONAZOLE. [Concomitant]
     Active Substance: MICONAZOLE
     Route: 061

REACTIONS (5)
  - Acute respiratory distress syndrome [Recovering/Resolving]
  - Pneumothorax [Unknown]
  - Pleural effusion [Unknown]
  - Pneumomediastinum [Unknown]
  - Acute respiratory failure [Recovered/Resolved]
